FAERS Safety Report 7949107-2 (Version None)
Quarter: 2011Q4

REPORT INFORMATION
  Report Type: 
  Country: None (occurrence: None)
  Receive Date: 20111130
  Receipt Date: 20111121
  Transmission Date: 20120403
  Serious: Yes (Other)
  Sender: FDA-Public Use
  Company Number: DE-ABBOTT-11P-062-0878710-00

PATIENT
  Age: 32 Year
  Sex: Female
  Weight: 57.5 kg

DRUGS (7)
  1. ACETYLSALICYLIC ACID SRT [Concomitant]
     Indication: PRODUCT USED FOR UNKNOWN INDICATION
     Dates: start: 20100804, end: 20110424
  2. LANSOPRAZOLE [Concomitant]
     Indication: GASTRITIS
     Dates: start: 20100915, end: 20101005
  3. FOLIC ACID [Concomitant]
     Indication: PRODUCT USED FOR UNKNOWN INDICATION
     Dates: start: 20100804
  4. HUMIRA [Suspect]
     Indication: CROHN'S DISEASE
     Route: 058
     Dates: end: 20110502
  5. PREDNISOLONE [Concomitant]
     Indication: PRODUCT USED FOR UNKNOWN INDICATION
     Dates: start: 20100804, end: 20110502
  6. ENOXAPARIN [Concomitant]
     Indication: PRODUCT USED FOR UNKNOWN INDICATION
     Dates: start: 20100804, end: 20110502
  7. OMEPRAZOLE [Concomitant]
     Indication: GASTRITIS
     Dates: start: 20101006, end: 20110502

REACTIONS (2)
  - COAGULOPATHY [None]
  - EMBOLISM ARTERIAL [None]
